FAERS Safety Report 7247379-3 (Version None)
Quarter: 2011Q1

REPORT INFORMATION
  Report Type: 
  Country: None (occurrence: None)
  Receive Date: 20110127
  Receipt Date: 20110114
  Transmission Date: 20110831
  Serious: Yes (Other)
  Sender: FDA-Public Use
  Company Number: PHHY2011BR03761

PATIENT
  Age: 88 Year
  Sex: Female

DRUGS (1)
  1. MIACALCIN [Suspect]
     Indication: OSTEOPOROSIS
     Dosage: 100 IU/ML, UNK

REACTIONS (2)
  - BONE PAIN [None]
  - SPINAL COLUMN INJURY [None]
